FAERS Safety Report 4353900-5 (Version None)
Quarter: 2004Q2

REPORT INFORMATION
  Report Type: 
  Country: None (occurrence: None)
  Receive Date: 20040506
  Receipt Date: 20031208
  Transmission Date: 20050107
  Serious: Yes (Other)
  Sender: FDA-Public Use
  Company Number: PHNU2003DE04339

PATIENT
  Age: 79 Year
  Sex: Female
  Weight: 68 kg

DRUGS (3)
  1. LOCOL [Suspect]
     Indication: HYPERCHOLESTEROLAEMIA
     Dosage: 40 MG, QD
     Dates: start: 20020101
  2. ACETYLSALICYLIC ACID SRT [Concomitant]
  3. ISDN ^ALIUD PHARMA^ [Concomitant]

REACTIONS (4)
  - MUSCLE ATROPHY [None]
  - MUSCULAR WEAKNESS [None]
  - PHAEOCHROMOCYTOMA [None]
  - WEIGHT DECREASED [None]
